FAERS Safety Report 15934055 (Version 2)
Quarter: 2019Q3

REPORT INFORMATION
  Report Type: Report from Study
  Country: IN (occurrence: IN)
  Receive Date: 20190207
  Receipt Date: 20190716
  Transmission Date: 20191004
  Serious: Yes (Other)
  Sender: FDA-Public Use
  Company Number: IN-MYLANLABS-2019M1010714

PATIENT
  Age: 30 Year
  Sex: Male

DRUGS (10)
  1. PYRAZINAMIDE. [Suspect]
     Active Substance: PYRAZINAMIDE
     Indication: SERPIGINOUS CHOROIDITIS
     Dosage: 25-30 MG/KG DAILY FOR FIRST 2 MONTHS
     Route: 065
  2. ISONIAZID. [Suspect]
     Active Substance: ISONIAZID
     Indication: SERPIGINOUS CHOROIDITIS
     Dosage: 5 MILLIGRAM/KILOGRAM
     Route: 065
  3. PREDNISOLONE ACETATE. [Concomitant]
     Active Substance: PREDNISOLONE ACETATE
     Indication: SERPIGINOUS CHOROIDITIS
     Route: 048
  4. PREDNISOLONE ACETATE. [Concomitant]
     Active Substance: PREDNISOLONE ACETATE
     Indication: TUBERCULOSIS OF EYE
  5. ETHAMBUTOL [Suspect]
     Active Substance: ETHAMBUTOL HYDROCHLORIDE
     Indication: TUBERCULOSIS OF EYE
  6. PYRAZINAMIDE. [Suspect]
     Active Substance: PYRAZINAMIDE
     Indication: TUBERCULOSIS OF EYE
  7. ISONIAZID. [Suspect]
     Active Substance: ISONIAZID
     Indication: TUBERCULOSIS OF EYE
     Dosage: CONTINUED FOR ANOTHER 7 MONTHS
     Route: 065
  8. RIFAMPICIN [Suspect]
     Active Substance: RIFAMPIN
     Indication: TUBERCULOSIS OF EYE
     Dosage: CONTINUED FOR ANOTHER 7 MONTHS
     Route: 065
  9. ETHAMBUTOL [Suspect]
     Active Substance: ETHAMBUTOL HYDROCHLORIDE
     Indication: SERPIGINOUS CHOROIDITIS
     Dosage: 15 MILLIGRAM/KILOGRAM, QD
     Route: 065
  10. RIFAMPICIN [Suspect]
     Active Substance: RIFAMPIN
     Indication: SERPIGINOUS CHOROIDITIS
     Dosage: 450 MG DAILY IF BODY WEIGHT WAS LESS THAN 50 KG AND 600 MG DAILY IF BODY WEIGHT MORE THAN 50 KG
     Route: 065

REACTIONS (4)
  - Condition aggravated [Recovered/Resolved]
  - Paradoxical drug reaction [Recovered/Resolved]
  - Serpiginous choroiditis [Recovered/Resolved]
  - Tuberculosis of eye [Recovered/Resolved]
